FAERS Safety Report 10419971 (Version 1)
Quarter: 2014Q3

REPORT INFORMATION
  Report Type: Spontaneous
  Country: US (occurrence: None)
  Receive Date: 20140828
  Receipt Date: 20140828
  Transmission Date: 20150326
  Serious: Yes (Hospitalization)
  Sender: FDA-Public Use
  Company Number: INS201408-000170

PATIENT
  Age: 51 Year
  Sex: Male
  Weight: 113.4 kg

DRUGS (2)
  1. SUBSYS [Suspect]
     Active Substance: FENTANYL
     Indication: CANCER PAIN
     Route: 060
  2. MORPHINE EXTENDED RELEASE [Concomitant]

REACTIONS (1)
  - Investigation [None]

NARRATIVE: CASE EVENT DATE: 20140805
